FAERS Safety Report 8581398-X (Version None)
Quarter: 2012Q3

REPORT INFORMATION
  Report Type: 
  Country: None (occurrence: None)
  Receive Date: 20120809
  Receipt Date: 20120731
  Transmission Date: 20120928
  Serious: Yes (Hospitalization)
  Sender: FDA-Public Use
  Company Number: BR-SANOFI-AVENTIS-2012SA054963

PATIENT
  Age: 54 Year
  Sex: Male
  Weight: 89.3 kg

DRUGS (9)
  1. ASPIRIN [Concomitant]
  2. METFORMIN HYDROCHLORIDE [Concomitant]
  3. IRBESARTAN AND HYDROCHLOROTHIAZIDE [Concomitant]
  4. PLAVIX [Concomitant]
  5. METOPROLOL SUCCINATE [Concomitant]
  6. SIMVASTATIN [Concomitant]
  7. ISOSORBIDE MONONITRATE [Concomitant]
  8. AMLODIPINE [Concomitant]
  9. LANTUS [Suspect]
     Route: 058
     Dates: start: 20110101

REACTIONS (9)
  - FRACTURE [None]
  - DIZZINESS [None]
  - WOUND INFECTION [None]
  - HYPERGLYCAEMIA [None]
  - FALL [None]
  - RIB FRACTURE [None]
  - CLAVICLE FRACTURE [None]
  - DYSPNOEA [None]
  - LACERATION [None]
